FAERS Safety Report 6985769-4 (Version None)
Quarter: 2010Q3

REPORT INFORMATION
  Report Type: 
  Country: None (occurrence: None)
  Receive Date: 20100915
  Receipt Date: 20100901
  Transmission Date: 20110219
  Serious: Yes (Hospitalization)
  Sender: FDA-Public Use
  Company Number: DE-GENENTECH-305914

PATIENT
  Sex: Female
  Weight: 68 kg

DRUGS (4)
  1. RITUXIMAB [Suspect]
     Indication: LYMPHOMA
     Dosage: 640 MG, Q4W
     Route: 042
     Dates: start: 20100721, end: 20100825
  2. BENDAMUSTINE [Suspect]
     Indication: LYMPHOMA
     Dosage: 300 MG, Q4W
     Route: 042
     Dates: start: 20100722
  3. HYDROCHLORTHIAZID [Concomitant]
     Indication: PRODUCT USED FOR UNKNOWN INDICATION
     Dosage: UNK
     Dates: end: 20100811
  4. CARBIMAZOL [Concomitant]
     Indication: PRODUCT USED FOR UNKNOWN INDICATION
     Dosage: UNK

REACTIONS (4)
  - MOUTH INJURY [None]
  - RASH GENERALISED [None]
  - SYNCOPE [None]
  - URINARY TRACT INFECTION [None]
